FAERS Safety Report 13206554 (Version 1)
Quarter: 2017Q1

REPORT INFORMATION
  Report Type: Spontaneous
  Country: US (occurrence: US)
  Receive Date: 20170209
  Receipt Date: 20170209
  Transmission Date: 20170428
  Serious: No
  Sender: FDA-Public Use
  Company Number: None

PATIENT
  Age: 71 Year
  Sex: Female
  Weight: 72.12 kg

DRUGS (3)
  1. AMOCICILLIN AND CLAVULANATE [Suspect]
     Active Substance: AMOXICILLIN\CLAVULANATE POTASSIUM
     Indication: ANIMAL BITE
     Dosage: BOTH 4 SHOTS IN BUTTOX?1 IN R ARM?
     Dates: start: 20170109, end: 20170109
  2. SRZ-TMP DS [Suspect]
     Active Substance: SULFAMETHOXAZOLE\TRIMETHOPRIM
     Dosage: FREQUENCY - TWICE DAILY FOR 10 DAYS
     Route: 048
  3. LORAZEPAM. [Concomitant]
     Active Substance: LORAZEPAM

REACTIONS (4)
  - Gait disturbance [None]
  - Lip ulceration [None]
  - Mouth ulceration [None]
  - Tongue ulceration [None]

NARRATIVE: CASE EVENT DATE: 20170109
